FAERS Safety Report 16516952 (Version 3)
Quarter: 2020Q2

REPORT INFORMATION
  Report Type: Report from Study
  Country: US (occurrence: US)
  Receive Date: 20190702
  Receipt Date: 20200615
  Transmission Date: 20200713
  Serious: Yes (Hospitalization)
  Sender: FDA-Public Use
  Company Number: US-EISAI MEDICAL RESEARCH-EC-2019-058353

PATIENT
  Age: 72 Year
  Sex: Female

DRUGS (5)
  1. LENVIMA [Suspect]
     Active Substance: LENVATINIB
     Indication: RENAL CANCER
     Route: 048
     Dates: start: 20190622, end: 201906
  2. LENVIMA [Suspect]
     Active Substance: LENVATINIB
     Route: 048
     Dates: start: 201906, end: 201908
  3. LENVIMA [Suspect]
     Active Substance: LENVATINIB
     Dosage: 4MG ALTERNATING WITH 8MG EVERY OTHER DAY.
     Route: 048
     Dates: start: 201908, end: 202001
  4. XARELTO [Concomitant]
     Active Substance: RIVAROXABAN
  5. LENVIMA [Suspect]
     Active Substance: LENVATINIB
     Route: 048
     Dates: start: 202001, end: 202006

REACTIONS (10)
  - Dizziness [Not Recovered/Not Resolved]
  - Vomiting [Recovering/Resolving]
  - Epistaxis [Unknown]
  - Blood pressure fluctuation [Unknown]
  - Night sweats [Unknown]
  - Diarrhoea [Recovering/Resolving]
  - Electrocardiogram abnormal [Recovered/Resolved]
  - Hypotension [Not Recovered/Not Resolved]
  - Asthenia [Recovering/Resolving]
  - Dehydration [Not Recovered/Not Resolved]

NARRATIVE: CASE EVENT DATE: 201906
